FAERS Safety Report 6831884-5 (Version None)
Quarter: 2010Q3

REPORT INFORMATION
  Report Type: 
  Country: None (occurrence: None)
  Receive Date: 20100712
  Receipt Date: 20100701
  Transmission Date: 20110219
  Serious: Yes (Other)
  Sender: FDA-Public Use
  Company Number: IT-ASTRAZENECA-2010SE30950

PATIENT
  Age: 74 Year
  Sex: Male

DRUGS (1)
  1. LUCEN [Suspect]
     Indication: GASTROOESOPHAGITIS
     Route: 048
     Dates: start: 20100320, end: 20100327

REACTIONS (1)
  - RESPIRATORY FAILURE [None]
